FAERS Safety Report 11329564 (Version 1)
Quarter: 2015Q3

REPORT INFORMATION
  Report Type: Spontaneous
  Country: FR (occurrence: None)
  Receive Date: 20150730
  Receipt Date: 20150730
  Transmission Date: 20151125
  Serious: Yes (Hospitalization, Other)
  Sender: FDA-Public Use
  Company Number: ADR-2015-01418

PATIENT
  Age: 60 Year
  Sex: Male

DRUGS (12)
  1. ELIQUIS [Suspect]
     Active Substance: APIXABAN
     Route: 048
     Dates: start: 20150218, end: 20150402
  2. FLECAINE (FLECAINIDE ACETATE) [Concomitant]
  3. ALDACTONE [Suspect]
     Active Substance: SPIRONOLACTONE
     Dosage: 0.5 DF
     Route: 048
     Dates: start: 20150402
  4. EZETROL (EZETIMIBE) [Suspect]
     Active Substance: EZETIMIBE
     Route: 048
     Dates: end: 20150402
  5. ALLOPURINOL (NGX) [Suspect]
     Active Substance: ALLOPURINOL
     Route: 048
     Dates: end: 20150402
  6. CORTANCYL (PREDNISONE) [Concomitant]
     Active Substance: PREDNISONE
  7. DOLIPRANE [Concomitant]
     Active Substance: ACETAMINOPHEN
  8. SALAZOPYRINE [Suspect]
     Active Substance: SULFASALAZINE
     Indication: RHEUMATOID ARTHRITIS
     Dosage: 3 DF QD
     Route: 048
     Dates: start: 20150205, end: 20150326
  9. OROKEN (CEFIXIME) [Suspect]
     Active Substance: CEFIXIME
     Dosage: 2 DF QD
     Route: 048
     Dates: start: 20150331, end: 20150402
  10. EUPANTOL [Concomitant]
     Active Substance: PANTOPRAZOLE SODIUM
  11. NEURONTIN [Suspect]
     Active Substance: GABAPENTIN
     Route: 048
  12. LIORESAL [Suspect]
     Active Substance: BACLOFEN
     Indication: ALCOHOL WITHDRAWAL SYNDROME
     Dates: end: 20150402

REACTIONS (13)
  - Platelet count decreased [None]
  - Diarrhoea [None]
  - Hyponatraemia [None]
  - Arrhythmia [None]
  - Withdrawal syndrome [None]
  - Cough [None]
  - Haemoglobin decreased [None]
  - Staphylococcus test positive [None]
  - Neutropenia [None]
  - Renal failure [None]
  - Hypotension [None]
  - Pyrexia [None]
  - Agranulocytosis [None]
